FAERS Safety Report 19050780 (Version 2)
Quarter: 2021Q2

REPORT INFORMATION
  Report Type: Spontaneous
  Country: US (occurrence: US)
  Receive Date: 20210323
  Receipt Date: 20210406
  Transmission Date: 20210717
  Serious: No
  Sender: FDA-Public Use
  Company Number: US-SUNOVION-2021SUN000866

PATIENT
  Age: 38 Year
  Sex: Male
  Weight: 86.17 kg

DRUGS (8)
  1. AMBIEN [Suspect]
     Active Substance: ZOLPIDEM TARTRATE
     Indication: INSOMNIA
     Dosage: 12.5 MG, HS
     Route: 048
  2. KLONOPIN [Concomitant]
     Active Substance: CLONAZEPAM
     Dosage: 3 MG, QD
     Route: 048
  3. LATUDA [Suspect]
     Active Substance: LURASIDONE HYDROCHLORIDE
     Indication: SCHIZOAFFECTIVE DISORDER
     Dosage: 80 MG, QD
     Route: 048
     Dates: start: 20210305
  4. ZYRTEC [Concomitant]
     Active Substance: CETIRIZINE HYDROCHLORIDE
     Indication: HYPERSENSITIVITY
     Dosage: UNK
  5. OMEPRAZOLE. [Concomitant]
     Active Substance: OMEPRAZOLE
     Dosage: 40 MG, QD
     Route: 048
  6. VRAYLAR [Concomitant]
     Active Substance: CARIPRAZINE
     Dosage: 60 MG, QD
     Route: 048
  7. LATUDA [Suspect]
     Active Substance: LURASIDONE HYDROCHLORIDE
     Dosage: 160 MG, QD (2 80MG TABS)
     Route: 048
     Dates: end: 20210304
  8. LATUDA [Suspect]
     Active Substance: LURASIDONE HYDROCHLORIDE
     Dosage: 20?120 MG
     Route: 048

REACTIONS (13)
  - Incorrect dose administered [Unknown]
  - Dry mouth [Unknown]
  - Off label use [Unknown]
  - Anger [Unknown]
  - Psychomotor hyperactivity [Unknown]
  - Throat irritation [Unknown]
  - Paranoia [Unknown]
  - Urticaria [Recovering/Resolving]
  - Pruritus [Recovering/Resolving]
  - Swollen tongue [Unknown]
  - Dry eye [Unknown]
  - Rash pruritic [Not Recovered/Not Resolved]
  - Insomnia [Unknown]
